FAERS Safety Report 8374741-8 (Version None)
Quarter: 2012Q2

REPORT INFORMATION
  Report Type: 
  Country: None (occurrence: None)
  Receive Date: 20120521
  Receipt Date: 20120515
  Transmission Date: 20120825
  Serious: Yes (Hospitalization)
  Sender: FDA-Public Use
  Company Number: US-ACTELION-A-NJ2011-49280

PATIENT

DRUGS (2)
  1. TRACLEER [Suspect]
     Indication: PULMONARY ARTERIAL HYPERTENSION
     Dosage: UNK
     Route: 048
     Dates: start: 20110202
  2. CALCIUM CHANNEL BLOCKERS [Concomitant]

REACTIONS (4)
  - CLOSTRIDIAL INFECTION [None]
  - PAIN [None]
  - SICKLE CELL ANAEMIA WITH CRISIS [None]
  - DYSPHONIA [None]
